FAERS Safety Report 5355867-X (Version None)
Quarter: 2007Q2

REPORT INFORMATION
  Report Type: 
  Country: None (occurrence: None)
  Receive Date: 20070530
  Receipt Date: 20070108
  Transmission Date: 20071010
  Serious: Yes (Life-Threatening, Hospitalization)
  Sender: FDA-Public Use
  Company Number: US200610001004

PATIENT
  Age: 44 Year
  Sex: Male
  Weight: 77.6 kg

DRUGS (3)
  1. ZYPREXA [Suspect]
     Indication: SCHIZOPHRENIA
     Dosage: 30 MG, EACH EVENING
     Dates: start: 20000101
  2. TRAZODONE HCL [Concomitant]
  3. TRICOR [Concomitant]

REACTIONS (3)
  - BLOOD TRIGLYCERIDES INCREASED [None]
  - HYPERTENSION [None]
  - PRESCRIBED OVERDOSE [None]
